FAERS Safety Report 9985026 (Version 1)
Quarter: 2014Q1

REPORT INFORMATION
  Report Type: Report from Study
  Country: US (occurrence: US)
  Receive Date: 20140307
  Receipt Date: 20140307
  Transmission Date: 20141002
  Serious: No
  Sender: FDA-Public Use
  Company Number: US-ABBVIE-14P-163-1186703-00

PATIENT
  Age: 72 Year
  Sex: Female

DRUGS (10)
  1. HUMIRA [Suspect]
     Indication: CROHN^S DISEASE
     Dates: start: 20131203, end: 20131203
  2. HUMIRA [Suspect]
     Dates: start: 20131217, end: 20131217
  3. HUMIRA [Suspect]
  4. ALDA [Concomitant]
     Indication: CROHN^S DISEASE
  5. PREDNISONE [Concomitant]
     Indication: CROHN^S DISEASE
     Dosage: WILL EVENTUALLY TAPER OFF
  6. LOW THYROID PILL [Concomitant]
     Indication: HYPOTHYROIDISM
  7. MEDICATION FOR INDIGESTION [Concomitant]
     Indication: DYSPEPSIA
  8. SIMVASTATIN [Concomitant]
     Indication: BLOOD CHOLESTEROL INCREASED
     Dosage: AT NIGHT
  9. MUSCLE RELAXER [Concomitant]
     Indication: BACK PAIN
  10. RESTASIS [Concomitant]
     Indication: DRY EYE

REACTIONS (1)
  - Rash [Not Recovered/Not Resolved]
